FAERS Safety Report 7056949-7 (Version None)
Quarter: 2010Q4

REPORT INFORMATION
  Report Type: 
  Country: None (occurrence: None)
  Receive Date: 20101022
  Receipt Date: 20101011
  Transmission Date: 20110411
  Serious: Yes (Other)
  Sender: FDA-Public Use
  Company Number: FR-RANBAXY-2010RR-33717

PATIENT
  Age: 71 Year
  Sex: Male

DRUGS (5)
  1. VORICONAZOLE [Suspect]
     Dosage: 400 MG/ DAY
     Route: 048
     Dates: start: 20061128
  2. SIMVASTATIN [Suspect]
     Dosage: 20 MG, UNK
     Route: 065
     Dates: start: 20070724
  3. VORICONAZOLE [Suspect]
     Indication: BRONCHOPULMONARY ASPERGILLOSIS
     Dosage: 400 MG, UNK
     Dates: start: 20061128, end: 20071120
  4. POSACONAZOLE [Concomitant]
     Dosage: 400 MG, BID
     Route: 065
     Dates: start: 20071120
  5. VORICONAZOLE [Concomitant]
     Dosage: 200 MG, UNK
     Route: 065

REACTIONS (4)
  - BALANCE DISORDER [None]
  - DRUG INTERACTION [None]
  - HYPOREFLEXIA [None]
  - NEUROPATHY PERIPHERAL [None]
